FAERS Safety Report 4883396-6 (Version None)
Quarter: 2006Q1

REPORT INFORMATION
  Report Type: 
  Country: None (occurrence: None)
  Receive Date: 20060118
  Receipt Date: 20060111
  Transmission Date: 20060701
  Serious: Yes (Hospitalization)
  Sender: FDA-Public Use
  Company Number: PHEH2006US00841

PATIENT
  Age: 68 Year
  Sex: Female

DRUGS (3)
  1. LOTENSIN [Suspect]
     Indication: HYPERTENSION
     Dosage: 5 MG, QD
     Dates: start: 20051001, end: 20051201
  2. LOTENSIN [Suspect]
     Dosage: 10 MG, QD
     Dates: start: 20051201
  3. LOTENSIN [Suspect]
     Dosage: 5 MG, QD

REACTIONS (5)
  - CARDIAC FAILURE CONGESTIVE [None]
  - DYSPNOEA [None]
  - FATIGUE [None]
  - FLUID RETENTION [None]
  - PALPITATIONS [None]
